FAERS Safety Report 4915234-7 (Version None)
Quarter: 2006Q1

REPORT INFORMATION
  Report Type: 
  Country: None (occurrence: None)
  Receive Date: 20060216
  Receipt Date: 20060216
  Transmission Date: 20060701
  Serious: Yes (Hospitalization)
  Sender: FDA-Public Use
  Company Number: None

PATIENT
  Sex: Female
  Weight: 40.8237 kg

DRUGS (7)
  1. TYLENOL W/ CODEINE [Suspect]
     Indication: HEADACHE
     Dosage: PO    PRIOR TO ADMISSION
     Route: 048
  2. PREDNISONE [Concomitant]
  3. SINGULAIR [Concomitant]
  4. PAXIL [Concomitant]
  5. XANAX [Concomitant]
  6. PREVACID [Concomitant]
  7. DIOVAN [Concomitant]

REACTIONS (3)
  - HALLUCINATION [None]
  - MENTAL STATUS CHANGES [None]
  - SPUTUM DISCOLOURED [None]
